FAERS Safety Report 24611836 (Version 1)
Quarter: 2024Q4

REPORT INFORMATION
  Report Type: Spontaneous
  Country: BE (occurrence: BE)
  Receive Date: 20241113
  Receipt Date: 20241113
  Transmission Date: 20250114
  Serious: Yes (Death, Other)
  Sender: ACCORD
  Company Number: BE-ROCHE-3292532

PATIENT
  Age: 61 Year
  Sex: Male

DRUGS (12)
  1. CAPECITABINE [Suspect]
     Active Substance: CAPECITABINE
     Indication: Metastases to liver
     Dosage: 2000 MG/M2 MILLIGRAM(S)/SQ. METER
     Dates: start: 201808
  2. OXALIPLATIN [Suspect]
     Active Substance: OXALIPLATIN
     Indication: Oesophageal adenocarcinoma
     Dates: start: 201808
  3. TRASTUZUMAB [Suspect]
     Active Substance: TRASTUZUMAB
     Indication: Oesophageal adenocarcinoma
     Dates: start: 201801
  4. NIVOLUMAB [Concomitant]
     Active Substance: NIVOLUMAB
     Indication: Oesophageal adenocarcinoma
     Dates: start: 2018
  5. PACLITAXEL [Concomitant]
     Active Substance: PACLITAXEL
     Indication: Metastases to lymph nodes
  6. RAMUCIRUMAB [Concomitant]
     Active Substance: RAMUCIRUMAB
     Indication: Metastasis
  7. OXALIPLATIN [Suspect]
     Active Substance: OXALIPLATIN
     Indication: Oesophageal cancer metastatic
     Dates: start: 201801
  8. CAPECITABINE [Suspect]
     Active Substance: CAPECITABINE
     Indication: Oesophageal adenocarcinoma
     Dates: start: 201801
  9. CAPECITABINE [Suspect]
     Active Substance: CAPECITABINE
     Indication: Oesophageal adenocarcinoma
     Dates: start: 201801, end: 2018
  10. TRASTUZUMAB [Suspect]
     Active Substance: TRASTUZUMAB
     Indication: Oesophageal cancer metastatic
     Dosage: 6 MILLIGRAM/KILOGRAM,Q3W (SOLUTION FOR INFUSION)
     Dates: start: 201801
  11. OXALIPLATIN [Suspect]
     Active Substance: OXALIPLATIN
     Indication: Oesophageal adenocarcinoma
     Dates: start: 201801, end: 2018
  12. TRASTUZUMAB [Suspect]
     Active Substance: TRASTUZUMAB
     Indication: Oesophageal adenocarcinoma
     Dosage: LOADING DOSE
     Dates: start: 201808

REACTIONS (6)
  - Drug intolerance [Unknown]
  - Neuropathy peripheral [Unknown]
  - Disease progression [Unknown]
  - Adenocarcinoma metastatic [Fatal]
  - Drug ineffective [Fatal]
  - Dysphagia [Unknown]

NARRATIVE: CASE EVENT DATE: 20180101
